FAERS Safety Report 7923700-5 (Version None)
Quarter: 2011Q4

REPORT INFORMATION
  Report Type: 
  Country: None (occurrence: None)
  Receive Date: 20111117
  Receipt Date: 20110207
  Transmission Date: 20120403
  Serious: Yes (Hospitalization)
  Sender: FDA-Public Use
  Company Number: US-AMGEN-USASP2011007095

PATIENT
  Age: 58 Year
  Sex: Female
  Weight: 136.5 kg

DRUGS (6)
  1. HUMIRA [Concomitant]
  2. OXYCODONE HCL [Concomitant]
  3. INSULIN GLARGINE [Concomitant]
  4. ENBREL [Suspect]
     Indication: PRODUCT USED FOR UNKNOWN INDICATION
  5. RAPTIVA [Concomitant]
  6. HYDROMORPHONE HCL [Concomitant]

REACTIONS (8)
  - STAPHYLOCOCCAL INFECTION [None]
  - PAIN IN EXTREMITY [None]
  - PSORIASIS [None]
  - INJECTION SITE PAIN [None]
  - GAIT DISTURBANCE [None]
  - SKIN FISSURES [None]
  - SCAR [None]
  - DRUG INEFFECTIVE [None]
